FAERS Safety Report 24362962 (Version 2)
Quarter: 2024Q4

REPORT INFORMATION
  Report Type: Spontaneous
  Country: US (occurrence: US)
  Receive Date: 20240925
  Receipt Date: 20241202
  Transmission Date: 20250114
  Serious: No
  Sender: PFIZER
  Company Number: US-PFIZER INC-PV202400123618

PATIENT
  Age: 22 Year
  Sex: Female

DRUGS (3)
  1. XELJANZ XR [Suspect]
     Active Substance: TOFACITINIB CITRATE
     Indication: Rheumatoid arthritis
     Dosage: 11 MG, DAILY
     Route: 048
     Dates: start: 20240810, end: 20240911
  2. XELJANZ XR [Suspect]
     Active Substance: TOFACITINIB CITRATE
     Dosage: 11 MG, DAILY
     Route: 048
     Dates: start: 20240810, end: 20241031
  3. DULOXETINE [Concomitant]
     Active Substance: DULOXETINE
     Indication: Depression
     Dosage: UNK

REACTIONS (6)
  - Drug ineffective [Unknown]
  - Increased appetite [Recovering/Resolving]
  - Acne [Recovered/Resolved]
  - Weight increased [Unknown]
  - Fatigue [Unknown]
  - Nasopharyngitis [Not Recovered/Not Resolved]

NARRATIVE: CASE EVENT DATE: 20240911
